FAERS Safety Report 8591699-7 (Version None)
Quarter: 2012Q3

REPORT INFORMATION
  Report Type: 
  Country: None (occurrence: None)
  Receive Date: 20120803
  Receipt Date: 20120803
  Transmission Date: 20120928
  Serious: No
  Sender: FDA-Public Use
  Company Number: None

PATIENT
  Sex: Female

DRUGS (1)
  1. ENBREL [Suspect]
     Indication: RHEUMATOID ARTHRITIS
     Dosage: 50MG QW SQ
     Route: 058
     Dates: start: 20120322

REACTIONS (7)
  - LYMPHADENOPATHY [None]
  - PAIN IN JAW [None]
  - GAIT DISTURBANCE [None]
  - MYALGIA [None]
  - MUSCULAR WEAKNESS [None]
  - HEADACHE [None]
  - DYSPHAGIA [None]
